FAERS Safety Report 9312217 (Version 1)
Quarter: 2013Q2

REPORT INFORMATION
  Report Type: Spontaneous
  Country: US (occurrence: US)
  Receive Date: 20130528
  Receipt Date: 20130528
  Transmission Date: 20140414
  Serious: No
  Sender: FDA-Public Use
  Company Number: US-MYLANLABS-2013S1003027

PATIENT
  Age: 60 Year
  Sex: Female
  Weight: 58.97 kg

DRUGS (18)
  1. MONTELUKAST SODIUM [Suspect]
     Indication: ASTHMA
     Route: 048
     Dates: start: 20121015, end: 20121016
  2. MONTELUKAST SODIUM [Suspect]
     Indication: MULTIPLE ALLERGIES
     Route: 048
     Dates: start: 20121015, end: 20121016
  3. METHENAMINE MANDELATE [Concomitant]
     Indication: CYSTITIS
  4. VITAMIN C [Concomitant]
     Indication: CYSTITIS
  5. BACLOFEN [Concomitant]
     Indication: MUSCLE SPASTICITY
  6. BONIVA [Concomitant]
     Indication: OSTEOPOROSIS
  7. FINACEA [Concomitant]
     Indication: ROSACEA
     Dosage: APPLY TO FACE
     Route: 061
  8. OMEPRAZOLE [Concomitant]
     Indication: GASTROOESOPHAGEAL REFLUX DISEASE
  9. DETROL LA [Concomitant]
     Indication: AUTOMATIC BLADDER
  10. SENNA [Concomitant]
     Indication: CONSTIPATION
  11. COLACE [Concomitant]
     Indication: CONSTIPATION
  12. DULCOLAX (BISACODYL) [Concomitant]
     Indication: CONSTIPATION
     Route: 054
  13. NITROFURANTOIN [Concomitant]
     Dosage: 8 DOSES AFTER CATHETER CHANGE
  14. DURACEF /00554701/ [Concomitant]
     Indication: PROPHYLAXIS
     Dosage: 500MG - 1000MG BID
  15. LOPROX [Concomitant]
     Indication: FUNGAL INFECTION
     Dosage: .77% - APPLY TO SKIN
     Route: 061
  16. LAMISIL [Concomitant]
     Dosage: 1% CREAM
  17. AMPYRA [Concomitant]
     Indication: MUSCULAR WEAKNESS
  18. CICLOPIROX [Concomitant]
     Indication: FUNGAL INFECTION
     Dosage: APPLY ON SKIN

REACTIONS (2)
  - Drug effect decreased [Recovered/Resolved]
  - Nasal congestion [Recovered/Resolved]
